FAERS Safety Report 8374864-3 (Version None)
Quarter: 2012Q2

REPORT INFORMATION
  Report Type: 
  Country: None (occurrence: None)
  Receive Date: 20120521
  Receipt Date: 20120220
  Transmission Date: 20120825
  Serious: No
  Sender: FDA-Public Use
  Company Number: US-ASTRAZENECA-2012SE09508

PATIENT
  Age: 71 Year
  Sex: Male

DRUGS (2)
  1. ALLEGRA [Concomitant]
     Dosage: UNKNOWN
  2. PRILOSEC OTC [Suspect]
     Route: 048
     Dates: start: 20120117, end: 20120123

REACTIONS (6)
  - PAIN [None]
  - INCORRECT DRUG ADMINISTRATION DURATION [None]
  - CHILLS [None]
  - MALAISE [None]
  - HEADACHE [None]
  - PRODUCT ODOUR ABNORMAL [None]
